FAERS Safety Report 4988598-6 (Version None)
Quarter: 2006Q2

REPORT INFORMATION
  Report Type: 
  Country: None (occurrence: None)
  Receive Date: 20060426
  Receipt Date: 20060406
  Transmission Date: 20061013
  Serious: Yes (Hospitalization)
  Sender: FDA-Public Use
  Company Number: DE200604001853

PATIENT
  Age: 48 Year
  Sex: Male

DRUGS (1)
  1. DULOXETINE HYDROCHLORIDE (DULOXETINE HYDROCHLORIDE) CAPSULE [Suspect]
     Indication: DEPRESSION
     Dosage: 60 MG, 2/D, ORAL
     Route: 048

REACTIONS (4)
  - CARDIOVASCULAR DISORDER [None]
  - HAEMATOMA [None]
  - IMPAIRED HEALING [None]
  - TENDON TRANSFER [None]
